FAERS Safety Report 6869986-X (Version None)
Quarter: 2010Q3

REPORT INFORMATION
  Report Type: 
  Country: None (occurrence: None)
  Receive Date: 20100722
  Receipt Date: 20090620
  Transmission Date: 20110219
  Serious: No
  Sender: FDA-Public Use
  Company Number: US-PFIZER INC-2008061186

PATIENT
  Sex: Female
  Weight: 45.4 kg

DRUGS (1)
  1. CHANTIX [Suspect]
     Indication: NICOTINE DEPENDENCE
     Dosage: 1 MG, UNK
     Route: 048

REACTIONS (4)
  - APPETITE DISORDER [None]
  - DRUG INTOLERANCE [None]
  - MALAISE [None]
  - WEIGHT INCREASED [None]
